FAERS Safety Report 20439590 (Version 1)
Quarter: 2022Q1

REPORT INFORMATION
  Report Type: Spontaneous
  Country: US (occurrence: None)
  Receive Date: 20220205
  Receipt Date: 20220205
  Transmission Date: 20220423
  Serious: Yes (Death, Hospitalization)
  Sender: FDA-Public Use
  Company Number: None

PATIENT
  Age: 17 Year
  Sex: Female
  Weight: 76.6 kg

DRUGS (2)
  1. CYTARABINE [Suspect]
     Active Substance: CYTARABINE
     Dates: end: 20220112
  2. ETOPOSIDE [Suspect]
     Active Substance: ETOPOSIDE
     Dates: end: 20220111

REACTIONS (27)
  - Chills [None]
  - Septic shock [None]
  - Alpha haemolytic streptococcal infection [None]
  - Pyrexia [None]
  - Diarrhoea [None]
  - Norovirus infection [None]
  - Neutropenia [None]
  - Enterocolitis [None]
  - Hypotension [None]
  - Tachycardia [None]
  - Lung opacity [None]
  - Pulmonary mass [None]
  - Colitis [None]
  - Hepatic steatosis [None]
  - Fungal infection [None]
  - Somnolence [None]
  - Blood creatinine increased [None]
  - Fungaemia [None]
  - Acute kidney injury [None]
  - Multiple organ dysfunction syndrome [None]
  - Central nervous system lesion [None]
  - Mental disorder [None]
  - Haemodialysis [None]
  - Scedosporium infection [None]
  - Blood bilirubin increased [None]
  - Acute respiratory distress syndrome [None]
  - Enteritis [None]

NARRATIVE: CASE EVENT DATE: 20220122
